FAERS Safety Report 4761497-0 (Version None)
Quarter: 2005Q3

REPORT INFORMATION
  Report Type: 
  Country: None (occurrence: None)
  Receive Date: 20050906
  Receipt Date: 20050812
  Transmission Date: 20060218
  Serious: Yes (Disabling)
  Sender: FDA-Public Use
  Company Number: GB-GLAXOSMITHKLINE-B0390590A

PATIENT
  Age: 46 Year
  Sex: Female
  Weight: 86 kg

DRUGS (8)
  1. AVANDIA [Suspect]
     Dates: start: 20050801, end: 20050815
  2. METFORMIN [Concomitant]
     Dosage: 850MG THREE TIMES PER DAY
     Route: 048
     Dates: start: 20050401
  3. LANSOPRAZOLE [Concomitant]
     Dosage: 30MG PER DAY
     Route: 048
     Dates: start: 20050401
  4. IMDUR [Concomitant]
     Dosage: 90MG PER DAY
     Route: 048
     Dates: start: 19980101
  5. ATORVASTATIN CALCIUM [Concomitant]
     Dosage: 10MG PER DAY
     Route: 048
     Dates: start: 20050401
  6. FUROSEMIDE [Concomitant]
     Dosage: 100MG PER DAY
     Route: 048
     Dates: start: 20050401
  7. ASPIRIN [Concomitant]
     Dosage: 75MG PER DAY
     Route: 048
     Dates: start: 19980101
  8. FERROGRAD [Concomitant]
     Dosage: 1TAB PER DAY
     Route: 048
     Dates: start: 20050401

REACTIONS (3)
  - ARTHRALGIA [None]
  - PAIN [None]
  - SWELLING [None]
